FAERS Safety Report 6020248-2 (Version None)
Quarter: 2008Q4

REPORT INFORMATION
  Report Type: 
  Country: None (occurrence: None)
  Receive Date: 20081226
  Receipt Date: 20081217
  Transmission Date: 20090506
  Serious: Yes (Other)
  Sender: FDA-Public Use
  Company Number: PHHY2008JP32017

PATIENT
  Sex: Male
  Weight: 66 kg

DRUGS (1)
  1. ZOMETA [Suspect]
     Indication: BACK PAIN
     Dosage: 4 MG, QMO
     Route: 042
     Dates: start: 20080101, end: 20080917

REACTIONS (3)
  - ABSCESS [None]
  - OSTEOMYELITIS [None]
  - STOMATITIS [None]
